FAERS Safety Report 6712054-8 (Version None)
Quarter: 2010Q2

REPORT INFORMATION
  Report Type: 
  Country: None (occurrence: None)
  Receive Date: 20100505
  Receipt Date: 20100422
  Transmission Date: 20101027
  Serious: Yes (Hospitalization)
  Sender: FDA-Public Use
  Company Number: PHHY2010TW10452

PATIENT
  Sex: Female
  Weight: 56 kg

DRUGS (5)
  1. ZOMETA [Suspect]
     Indication: METASTASES TO BONE
     Dosage: 4 MG/ Q 4 WEEKS
     Route: 042
     Dates: start: 20090803, end: 20100118
  2. EXEMESTANE [Concomitant]
     Indication: BREAST CANCER
     Dosage: 25 MG DAILY
     Route: 048
     Dates: start: 20100118
  3. TRASTUZUMAB [Concomitant]
     Indication: BREAST CANCER
     Dosage: 440 MG, Q4W
     Dates: start: 20090803, end: 20100222
  4. AMOXICILLIN [Concomitant]
     Indication: PERIODONTITIS
     Dosage: 1000 MG /DAY
     Route: 048
     Dates: start: 20100319, end: 20100322
  5. POVIDONE IODINE [Concomitant]
     Indication: PERIODONTITIS
     Dosage: PRN
     Dates: start: 20100319, end: 20100322

REACTIONS (18)
  - ABSCESS ORAL [None]
  - BONE DISORDER [None]
  - CELLULITIS [None]
  - DEBRIDEMENT [None]
  - DENTURE WEARER [None]
  - GINGIVAL ERYTHEMA [None]
  - GINGIVAL INFECTION [None]
  - GINGIVAL SWELLING [None]
  - MASS [None]
  - ORAL DISORDER [None]
  - OSTEOMYELITIS [None]
  - OSTEONECROSIS OF JAW [None]
  - PAIN [None]
  - PERIODONTITIS [None]
  - PYOGENIC GRANULOMA [None]
  - SECONDARY SEQUESTRUM [None]
  - SEQUESTRECTOMY [None]
  - TOOTH EXTRACTION [None]
